FAERS Safety Report 25365516 (Version 2)
Quarter: 2025Q2

REPORT INFORMATION
  Report Type: Spontaneous
  Country: US (occurrence: US)
  Receive Date: 20250527
  Receipt Date: 20250531
  Transmission Date: 20250717
  Serious: No
  Sender: CIPLA
  Company Number: US-CIPLA LTD.-2024US09297

PATIENT

DRUGS (9)
  1. ALBUTEROL [Suspect]
     Active Substance: ALBUTEROL
     Indication: Asthma
  2. ALBUTEROL [Suspect]
     Active Substance: ALBUTEROL
     Dates: start: 202406
  3. ALBUTEROL [Suspect]
     Active Substance: ALBUTEROL
     Dates: start: 2024
  4. LEVOTHYROXINE [Concomitant]
     Active Substance: LEVOTHYROXINE
     Indication: Hypothyroidism
     Dosage: 125 MICROGRAM, QD
     Route: 065
     Dates: start: 2018, end: 202404
  5. LEVOTHYROXINE [Concomitant]
     Active Substance: LEVOTHYROXINE
     Dosage: 137 MICROGRAM, QD
     Route: 065
     Dates: start: 202404
  6. MONTELUKAST [Concomitant]
     Active Substance: MONTELUKAST
     Indication: Asthma
     Dosage: 10 MILLIGRAM, QD (AT NIGHT)
     Route: 065
     Dates: start: 2019
  7. MONTELUKAST [Concomitant]
     Active Substance: MONTELUKAST
     Indication: Hypersensitivity
  8. FLUTICASONE [Concomitant]
     Active Substance: FLUTICASONE
     Indication: Product used for unknown indication
     Dosage: 100 MILLIGRAM, QD (50 MG/2 SPRAYS IN BOTH NOSTRILS ONCE DAILY)
     Route: 045
     Dates: start: 2020
  9. TRELEGY ELLIPTA [Concomitant]
     Active Substance: FLUTICASONE FUROATE\UMECLIDINIUM BROMIDE\VILANTEROL TRIFENATATE
     Indication: Asthma
     Route: 065
     Dates: start: 2020

REACTIONS (2)
  - Incorrect dose administered by device [Unknown]
  - Device delivery system issue [Unknown]

NARRATIVE: CASE EVENT DATE: 20240101
